FAERS Safety Report 7233813 (Version 35)
Quarter: 2020Q3

REPORT INFORMATION
  Report Type: Report from Study
  Country: CA (occurrence: CA)
  Receive Date: 20091230
  Receipt Date: 20200811
  Transmission Date: 20201103
  Serious: Yes (Hospitalization, Other)
  Sender: FDA-Public Use
  Company Number: PHHY2009CA57117

PATIENT
  Age: 61 Year
  Sex: Female

DRUGS (6)
  1. SANDOSTATIN [Suspect]
     Active Substance: OCTREOTIDE ACETATE
     Dosage: UNK UKN, TID
     Route: 058
  2. SANDOSTATIN [Suspect]
     Active Substance: OCTREOTIDE ACETATE
  3. SANDOSTATIN LAR DEPOT [Suspect]
     Active Substance: OCTREOTIDE ACETATE
     Indication: SHORT-BOWEL SYNDROME
     Dosage: 20 MG, QMO
     Route: 030
     Dates: start: 20091222
  4. SANDOSTATIN LAR DEPOT [Suspect]
     Active Substance: OCTREOTIDE ACETATE
     Dosage: 20 MG, QMO
     Route: 030
     Dates: start: 20151127
  5. SANDOSTATIN [Suspect]
     Active Substance: OCTREOTIDE ACETATE
     Indication: SHORT-BOWEL SYNDROME
     Dosage: UNK UNK, BID
     Route: 058
     Dates: start: 2009
  6. SANDOSTATIN LAR DEPOT [Suspect]
     Active Substance: OCTREOTIDE ACETATE
     Dosage: 10 MG, QMO
     Route: 030
     Dates: start: 20120319

REACTIONS (29)
  - Chromaturia [Unknown]
  - Pyrexia [Recovered/Resolved]
  - Fistula of small intestine [Unknown]
  - Fistula discharge [Unknown]
  - Cystitis [Unknown]
  - Abdominal discomfort [Unknown]
  - Sepsis [Recovering/Resolving]
  - Urinary tract stoma complication [Unknown]
  - Infected fistula [Unknown]
  - Stress [Unknown]
  - Pyrexia [Unknown]
  - Fatigue [Unknown]
  - Product use in unapproved indication [Unknown]
  - Staphylococcal infection [Unknown]
  - Urinary tract infection [Unknown]
  - Bursitis [Unknown]
  - Nasopharyngitis [Unknown]
  - Oropharyngeal pain [Unknown]
  - Blood pressure fluctuation [Unknown]
  - Infection [Unknown]
  - Female genital tract fistula [Unknown]
  - Pyelonephritis [Unknown]
  - Abdominal pain lower [Unknown]
  - Kidney infection [Unknown]
  - Dysuria [Unknown]
  - Blood pressure increased [Unknown]
  - Protein urine present [Unknown]
  - Asthenia [Unknown]
  - Bladder pain [Unknown]

NARRATIVE: CASE EVENT DATE: 20130906
